FAERS Safety Report 8836039 (Version 3)
Quarter: 2012Q4

REPORT INFORMATION
  Report Type: 
  Country: US (occurrence: US)
  Receive Date: 20121011
  Receipt Date: 20121101
  Transmission Date: 20130627
  Serious: Yes (Hospitalization, Other)
  Sender: FDA-Public Use
  Company Number: US-009507513-1104USA01066

PATIENT

DRUGS (9)
  1. FOSAMAX [Suspect]
     Indication: OSTEOPENIA
     Dosage: 70 mg, QW
     Route: 048
     Dates: start: 20010912, end: 20100923
  2. FOSAMAX [Suspect]
     Indication: OSTEOPENIA
     Route: 048
     Dates: start: 200803
  3. CALCIUM (UNSPECIFIED) [Concomitant]
     Dosage: 600 mg, bid
     Dates: start: 2001
  4. VITAMIN D (UNSPECIFIED) [Concomitant]
     Dosage: 400 IU, bid
     Dates: start: 2001
  5. MK-9278 [Concomitant]
     Dosage: UNK UNK, qd
     Dates: start: 2001
  6. HORMONES (UNSPECIFIED) [Concomitant]
     Dates: start: 1994, end: 2002
  7. PERCOCET [Concomitant]
     Indication: HEADACHE
     Dosage: 10-650,q4h
  8. DEMEROL [Concomitant]
     Indication: MIGRAINE
  9. LEVOTHYROXINE SODIUM [Concomitant]
     Indication: HYPOTHYROIDISM
     Dosage: 150 Microgram, qd

REACTIONS (144)
  - Femur fracture [Recovered/Resolved]
  - Open reduction of fracture [Unknown]
  - Open reduction of fracture [Unknown]
  - Ankle fracture [Unknown]
  - Hip arthroplasty [Unknown]
  - Wound infection staphylococcal [Not Recovered/Not Resolved]
  - Lumbar spinal stenosis [Unknown]
  - Arthropathy [Unknown]
  - Anxiety [Not Recovered/Not Resolved]
  - Hip arthroplasty [Unknown]
  - Rhinoplasty [Unknown]
  - Cardiac failure congestive [Unknown]
  - Osteomyelitis chronic [Not Recovered/Not Resolved]
  - Rib fracture [Unknown]
  - Sternal fracture [Unknown]
  - Road traffic accident [Unknown]
  - Accidental overdose [Unknown]
  - Mental status changes [Unknown]
  - Appendix disorder [Unknown]
  - Eyelid disorder [Unknown]
  - Colectomy [Unknown]
  - Hypoacusis [Unknown]
  - Mesenteric artery thrombosis [Unknown]
  - Diplopia [Unknown]
  - Ethmoid sinus surgery [Unknown]
  - Sinus operation [Unknown]
  - Angina unstable [Unknown]
  - Dyspnoea [Unknown]
  - Surgery [Unknown]
  - Myocardial infarction [Unknown]
  - Anxiety [Unknown]
  - Tibia fracture [Unknown]
  - Osteonecrosis [Unknown]
  - Hip fracture [Unknown]
  - Femur fracture [Unknown]
  - Visual impairment [Unknown]
  - Osteoarthritis [Unknown]
  - Small intestinal resection [Unknown]
  - Spinal laminectomy [Unknown]
  - Asthenia [Unknown]
  - Neck pain [Unknown]
  - Headache [Unknown]
  - Angiopathy [Unknown]
  - Hypersensitivity [Not Recovered/Not Resolved]
  - Blood cholesterol increased [Unknown]
  - Chronic sinusitis [Not Recovered/Not Resolved]
  - Infection [Unknown]
  - Insomnia [Not Recovered/Not Resolved]
  - Essential hypertension [Not Recovered/Not Resolved]
  - Rib fracture [Unknown]
  - Low turnover osteopathy [Unknown]
  - Depression [Not Recovered/Not Resolved]
  - Osteoporosis [Unknown]
  - Nasal septum deviation [Not Recovered/Not Resolved]
  - Nasal turbinate hypertrophy [Unknown]
  - Tooth disorder [Not Recovered/Not Resolved]
  - Intermittent claudication [Not Recovered/Not Resolved]
  - Anaemia of chronic disease [Unknown]
  - Iron deficiency [Unknown]
  - Neuropathy peripheral [Unknown]
  - Vitamin B12 deficiency [Unknown]
  - Vitamin D deficiency [Unknown]
  - Drug eruption [Not Recovered/Not Resolved]
  - Dermatitis [Unknown]
  - Tinea cruris [Recovered/Resolved]
  - Peptic ulcer [Unknown]
  - Urge incontinence [Not Recovered/Not Resolved]
  - Dry eye [Not Recovered/Not Resolved]
  - Borderline glaucoma [Not Recovered/Not Resolved]
  - Cataract [Unknown]
  - Cellulitis [Recovered/Resolved]
  - Refraction disorder [Unknown]
  - Corneal scar [Unknown]
  - Hyalosis asteroid [Unknown]
  - Fat necrosis [Unknown]
  - Seroma [Unknown]
  - Atelectasis [Unknown]
  - Pituitary tumour benign [Unknown]
  - Cutis laxa [Unknown]
  - Impaired gastric emptying [Unknown]
  - Peripheral vascular disorder [Unknown]
  - Blood thyroid stimulating hormone increased [Unknown]
  - Blood follicle stimulating hormone decreased [Unknown]
  - Blood luteinising hormone decreased [Unknown]
  - Intestinal ischaemia [Not Recovered/Not Resolved]
  - Transient ischaemic attack [Unknown]
  - Dyssomnia [Unknown]
  - Tooth infection [Unknown]
  - Dehydration [Unknown]
  - Staphylococcal infection [Unknown]
  - Pneumonia [Unknown]
  - Syncope [Unknown]
  - Otitis media [Not Recovered/Not Resolved]
  - Brain mass [Not Recovered/Not Resolved]
  - Road traffic accident [Unknown]
  - Hot flush [Unknown]
  - Nocturia [Unknown]
  - Syncope [Unknown]
  - Blood triglycerides increased [Unknown]
  - Osteoarthritis [Unknown]
  - Papule [Unknown]
  - Post gastric surgery syndrome [Unknown]
  - Fall [Unknown]
  - Osteoarthritis [Unknown]
  - Foot deformity [Unknown]
  - Foot deformity [Unknown]
  - Fall [Unknown]
  - Seasonal allergy [Not Recovered/Not Resolved]
  - Lumbar radiculopathy [Unknown]
  - Axonal neuropathy [Unknown]
  - Diverticulum intestinal [Unknown]
  - Haemorrhoids [Unknown]
  - Gastric disorder [Unknown]
  - Contusion [Unknown]
  - Biopsy breast [Unknown]
  - Cerebral atrophy [Unknown]
  - Cerebral calcification [Unknown]
  - Cardiac murmur [Unknown]
  - Short-bowel syndrome [Unknown]
  - Incision site cellulitis [Unknown]
  - Sinusitis [Unknown]
  - Reversible ischaemic neurological deficit [Unknown]
  - Gastrointestinal toxicity [Unknown]
  - Bronchitis [Unknown]
  - Small intestinal obstruction [Unknown]
  - Laceration [Unknown]
  - Breast lump removal [Unknown]
  - Gastritis [Unknown]
  - Back pain [Not Recovered/Not Resolved]
  - Arthralgia [Not Recovered/Not Resolved]
  - Oesophagitis [Unknown]
  - Musculoskeletal pain [Unknown]
  - Neck pain [Unknown]
  - Drug hypersensitivity [Unknown]
  - Musculoskeletal chest pain [Recovered/Resolved]
  - Muscle spasms [Unknown]
  - Alopecia [Unknown]
  - Gastrooesophageal reflux disease [Not Recovered/Not Resolved]
  - Nausea [Unknown]
  - Shoulder arthroplasty [Unknown]
  - Humerus fracture [Unknown]
  - Fall [Unknown]
  - Lumbar vertebral fracture [Unknown]
  - Fracture nonunion [Recovering/Resolving]
